FAERS Safety Report 17883834 (Version 1)
Quarter: 2020Q2

REPORT INFORMATION
  Report Type: Spontaneous
  Country: IT (occurrence: IT)
  Receive Date: 20200611
  Receipt Date: 20200611
  Transmission Date: 20200714
  Serious: Yes (Hospitalization, Other)
  Sender: FDA-Public Use
  Company Number: IT-PBT-000059

PATIENT
  Age: 56 Year

DRUGS (1)
  1. TACROLIMUS. [Suspect]
     Active Substance: TACROLIMUS
     Indication: PROPHYLAXIS AGAINST TRANSPLANT REJECTION
     Route: 065

REACTIONS (7)
  - Liver transplant rejection [Unknown]
  - Pulmonary nocardiosis [Recovered/Resolved]
  - Atrial fibrillation [Unknown]
  - Chordae tendinae rupture [Unknown]
  - Drug ineffective [Unknown]
  - Phaeohyphomycosis [Recovered/Resolved]
  - Cytomegalovirus viraemia [Recovered/Resolved]
